FAERS Safety Report 7457533-3 (Version None)
Quarter: 2011Q2

REPORT INFORMATION
  Report Type: 
  Country: None (occurrence: None)
  Receive Date: 20110504
  Receipt Date: 20110428
  Transmission Date: 20111010
  Serious: Yes (Life-Threatening, Hospitalization)
  Sender: FDA-Public Use
  Company Number: FR-BRISTOL-MYERS SQUIBB COMPANY-15707235

PATIENT
  Age: 81 Year
  Sex: Male

DRUGS (7)
  1. DOXAZOSIN MESYLATE [Suspect]
     Indication: BENIGN PROSTATIC HYPERPLASIA
     Dosage: ZOXAN SR,TAB 1DF:1TAB
     Route: 048
  2. CABERGOLINE [Suspect]
     Indication: PROLACTINOMA
     Route: 048
  3. LEVOTHYROX [Suspect]
     Indication: HYPOTHYROIDISM
     Dosage: 1 SCORED TABLET
     Route: 048
  4. MULTAQ [Suspect]
     Indication: ARRHYTHMIA
     Dosage: 2DF:2 FILM-COATED TABLETS MULTAQ 400 MG
     Route: 048
     Dates: start: 20101124, end: 20110204
  5. APROVEL TABS 150 MG [Suspect]
     Indication: HYPERTENSION
     Dosage: 1DF:1 TAB
     Route: 048
  6. PRAVASTATIN SODIUM [Suspect]
     Indication: HYPERCHOLESTEROLAEMIA
     Dosage: PRAVASTATINE SODIUM
     Route: 048
  7. PREVISCAN [Suspect]
     Indication: ARRHYTHMIA
     Route: 048
     Dates: start: 20101124, end: 20110101

REACTIONS (4)
  - SQUAMOUS CELL CARCINOMA [None]
  - METASTASES TO KIDNEY [None]
  - DIARRHOEA [None]
  - METASTASES TO LIVER [None]
